FAERS Safety Report 7785463-6 (Version None)
Quarter: 2011Q3

REPORT INFORMATION
  Report Type: 
  Country: None (occurrence: None)
  Receive Date: 20110929
  Receipt Date: 20110921
  Transmission Date: 20111222
  Serious: Yes (Death, Hospitalization)
  Sender: FDA-Public Use
  Company Number: PL-ABBOTT-11P-129-0851269-00

PATIENT
  Sex: Female
  Weight: 46 kg

DRUGS (6)
  1. TRAZODONE HYDROCHLORIDE [Concomitant]
     Indication: ANKYLOSING SPONDYLITIS
     Route: 048
     Dates: start: 20090101, end: 20110101
  2. POLPRAZOL [Concomitant]
     Indication: ANKYLOSING SPONDYLITIS
     Route: 048
     Dates: start: 20040101, end: 20110101
  3. BACLOFEN [Concomitant]
     Indication: ANKYLOSING SPONDYLITIS
     Route: 048
     Dates: start: 20010101, end: 20110101
  4. HUMIRA [Suspect]
     Indication: ANKYLOSING SPONDYLITIS
     Route: 058
     Dates: start: 20101220, end: 20110905
  5. METHYLPREDNISOLONUM [Concomitant]
     Indication: ANKYLOSING SPONDYLITIS
     Route: 048
     Dates: start: 20010101, end: 20110101
  6. DICLOFENACUM NATRICUM [Concomitant]
     Indication: ANKYLOSING SPONDYLITIS
     Route: 048
     Dates: start: 20010101, end: 20110101

REACTIONS (4)
  - RESPIRATORY FAILURE [None]
  - SEPSIS [None]
  - PNEUMONIA [None]
  - CIRCULATORY COLLAPSE [None]
